FAERS Safety Report 25708647 (Version 2)
Quarter: 2025Q3

REPORT INFORMATION
  Report Type: Spontaneous
  Country: US (occurrence: US)
  Receive Date: 20250821
  Receipt Date: 20250826
  Transmission Date: 20251021
  Serious: No
  Sender: TEVA
  Company Number: US-TEVA-VS-3363761

PATIENT
  Age: 67 Year
  Sex: Female

DRUGS (2)
  1. AUSTEDO XR [Suspect]
     Active Substance: DEUTETRABENAZINE
     Indication: Tardive dyskinesia
     Dosage: AUSTEDO XR 36 MG DAILY
     Route: 065
     Dates: start: 2025, end: 2025
  2. AUSTEDO XR [Suspect]
     Active Substance: DEUTETRABENAZINE
     Indication: Tardive dyskinesia
     Dosage: 1 TABLET BY MOUTH ONCE DAILY
     Route: 048
     Dates: start: 202506, end: 2025

REACTIONS (3)
  - Tongue biting [Unknown]
  - Drug ineffective [Unknown]
  - Drug titration error [Unknown]

NARRATIVE: CASE EVENT DATE: 20250101
